FAERS Safety Report 14069140 (Version 3)
Quarter: 2017Q4

REPORT INFORMATION
  Report Type: Report from Study
  Country: US (occurrence: US)
  Receive Date: 20171010
  Receipt Date: 20171220
  Transmission Date: 20180321
  Serious: Yes (Other)
  Sender: FDA-Public Use
  Company Number: US-SA-2017SA195540

PATIENT
  Age: 68 Year
  Sex: Female

DRUGS (1)
  1. CEREZYME [Suspect]
     Active Substance: IMIGLUCERASE
     Indication: GAUCHER^S DISEASE
     Dosage: DOSE: 2400.00?FREQUENCY: Q3
     Route: 041
     Dates: start: 20040415

REACTIONS (6)
  - Rib fracture [Unknown]
  - Spinal fracture [Unknown]
  - Contusion [Unknown]
  - Road traffic accident [Unknown]
  - Proteinuria [Unknown]
  - Mobility decreased [Unknown]

NARRATIVE: CASE EVENT DATE: 201710
